FAERS Safety Report 12328314 (Version 2)
Quarter: 2016Q2

REPORT INFORMATION
  Report Type: Spontaneous
  Country: CN (occurrence: CN)
  Receive Date: 20160503
  Receipt Date: 20160512
  Transmission Date: 20160815
  Serious: Yes (Other)
  Sender: FDA-Public Use
  Company Number: CN-BRISTOL-MYERS SQUIBB COMPANY-BMS-2016-034131

PATIENT
  Age: 66 Year
  Sex: Female

DRUGS (1)
  1. GLUCOPHAGE [Suspect]
     Active Substance: METFORMIN HYDROCHLORIDE
     Indication: TYPE 2 DIABETES MELLITUS
     Dosage: 0.5 G, TID
     Route: 048
     Dates: start: 2015

REACTIONS (10)
  - Fatigue [Unknown]
  - Nausea [Unknown]
  - Headache [Unknown]
  - Hyperventilation [Unknown]
  - Vomiting [Unknown]
  - Constipation [Unknown]
  - Chills [Unknown]
  - Cerebral haemorrhage [Unknown]
  - Gastric ulcer [Unknown]
  - Anaemia [Unknown]
